FAERS Safety Report 7649458-5 (Version None)
Quarter: 2011Q3

REPORT INFORMATION
  Report Type: 
  Country: None (occurrence: None)
  Receive Date: 20110802
  Receipt Date: 20110729
  Transmission Date: 20111222
  Serious: Yes (Disabling)
  Sender: FDA-Public Use
  Company Number: FR-ABBOTT-10P-056-0693299-00

PATIENT
  Sex: Male

DRUGS (3)
  1. HUMIRA [Suspect]
     Indication: SPONDYLITIS
     Route: 058
     Dates: end: 20100101
  2. HUMIRA [Suspect]
  3. NSAID [Concomitant]
     Indication: ANKYLOSING SPONDYLITIS
     Dates: start: 20000101

REACTIONS (3)
  - MULTIFOCAL MOTOR NEUROPATHY [None]
  - NERVE CONDUCTION STUDIES ABNORMAL [None]
  - ARTHRALGIA [None]
